FAERS Safety Report 7666962-4 (Version None)
Quarter: 2011Q3

REPORT INFORMATION
  Report Type: 
  Country: None (occurrence: None)
  Receive Date: 20110806
  Receipt Date: 20110719
  Transmission Date: 20111222
  Serious: No
  Sender: FDA-Public Use
  Company Number: US-ABBOTT-11P-163-0840456-00

PATIENT
  Sex: Male
  Weight: 104.42 kg

DRUGS (8)
  1. ALLOPURINOL [Concomitant]
     Indication: GOUT
  2. VERAPAMIL [Concomitant]
     Indication: HYPERTENSION
  3. ASPIRIN [Concomitant]
     Indication: CARDIOVASCULAR EVENT PROPHYLAXIS
  4. AVALIDE [Concomitant]
     Indication: HYPERTENSION
  5. FISH OIL [Concomitant]
     Indication: MEDICAL DIET
  6. NAPRELAN [Interacting]
     Indication: ARTHRITIS
     Dates: start: 20110718
  7. METFORMIN HCL [Concomitant]
     Indication: DIABETES MELLITUS
  8. NIASPAN [Suspect]
     Indication: BLOOD CHOLESTEROL INCREASED
     Dates: start: 20110201

REACTIONS (5)
  - DRUG INTERACTION [None]
  - FEELING HOT [None]
  - FLUSHING [None]
  - SUNBURN [None]
  - PRURITUS [None]
